FAERS Safety Report 11792574 (Version 1)
Quarter: 2015Q4

REPORT INFORMATION
  Report Type: Spontaneous
  Country: US (occurrence: US)
  Receive Date: 20151202
  Receipt Date: 20151202
  Transmission Date: 20160305
  Serious: Yes (Death, Hospitalization, Other)
  Sender: FDA-Public Use
  Company Number: US-JNJFOC-20151122793

PATIENT
  Sex: Male

DRUGS (1)
  1. TYLENOL EXTRA STRENGTH [Suspect]
     Active Substance: ACETAMINOPHEN
     Indication: PRODUCT USED FOR UNKNOWN INDICATION
     Dosage: AT APPROPRIATE TIMES AND IN APPROPRIATE AMOUNTS.
     Route: 048
     Dates: start: 201307, end: 20131113

REACTIONS (2)
  - Liver injury [Fatal]
  - Hepatic failure [Fatal]

NARRATIVE: CASE EVENT DATE: 201311
